FAERS Safety Report 5332226-7 (Version None)
Quarter: 2007Q2

REPORT INFORMATION
  Report Type: 
  Country: None (occurrence: None)
  Receive Date: 20070523
  Receipt Date: 20070521
  Transmission Date: 20071010
  Serious: Yes (Hospitalization)
  Sender: FDA-Public Use
  Company Number: US-BRISTOL-MYERS SQUIBB COMPANY-13786678

PATIENT
  Age: 66 Year
  Sex: Male
  Weight: 115 kg

DRUGS (6)
  1. CISPLATIN [Suspect]
     Route: 042
     Dates: start: 20070501, end: 20070501
  2. RADIATION THERAPY [Suspect]
     Dates: start: 20070508
  3. DECADRON [Suspect]
     Route: 042
     Dates: start: 20070501
  4. GLUCOPHAGE [Concomitant]
     Route: 048
  5. GLYBURIDE [Concomitant]
     Route: 048
  6. ACTOS [Concomitant]
     Route: 048

REACTIONS (3)
  - BLOOD CREATININE [None]
  - DEHYDRATION [None]
  - HYPERGLYCAEMIA [None]
